FAERS Safety Report 9511340 (Version 1)
Quarter: 2013Q3

REPORT INFORMATION
  Report Type: Spontaneous
  Country: GB (occurrence: GB)
  Receive Date: 20130910
  Receipt Date: 20130910
  Transmission Date: 20140515
  Serious: Yes (Other)
  Sender: FDA-Public Use
  Company Number: GB-JNJFOC-20130900986

PATIENT
  Age: 55 Year
  Sex: Male
  Weight: 82.8 kg

DRUGS (5)
  1. ITRACONAZOLE [Suspect]
     Indication: CANDIDA INFECTION
     Route: 065
     Dates: start: 20130603, end: 20130618
  2. ITRACONAZOLE [Suspect]
     Indication: CANDIDA INFECTION
     Route: 065
     Dates: start: 20130821
  3. CEPHALEXIN [Concomitant]
     Indication: PRODUCT USED FOR UNKNOWN INDICATION
     Route: 065
     Dates: start: 20130813, end: 20130820
  4. CEPHALEXIN [Concomitant]
     Indication: PRODUCT USED FOR UNKNOWN INDICATION
     Route: 065
     Dates: start: 20130603, end: 20130610
  5. CLARITHROMYCIN [Concomitant]
     Route: 065
     Dates: start: 20130524, end: 20130531

REACTIONS (2)
  - Blood bilirubin increased [Unknown]
  - Hypokalaemia [Unknown]
